FAERS Safety Report 7103440-5 (Version None)
Quarter: 2010Q4

REPORT INFORMATION
  Report Type: 
  Country: None (occurrence: None)
  Receive Date: 20101109
  Receipt Date: 20101026
  Transmission Date: 20110411
  Serious: Yes (Other)
  Sender: FDA-Public Use
  Company Number: 2010AP002279

PATIENT
  Age: 10 Year
  Sex: Male

DRUGS (2)
  1. FLUVOXAMINE MALEATE [Suspect]
     Indication: OBSESSIVE-COMPULSIVE DISORDER
     Dosage: 50 MG HS, 50 MG BID;
  2. SERTRALINE HYDROCHLORIDE [Suspect]
     Indication: OBSESSIVE-COMPULSIVE DISORDER
     Dosage: 25 MG, 75 MG, 25 MG

REACTIONS (3)
  - DISEASE RECURRENCE [None]
  - DISINHIBITION [None]
  - OBSESSIVE-COMPULSIVE DISORDER [None]
